FAERS Safety Report 4359303-1 (Version None)
Quarter: 2004Q2

REPORT INFORMATION
  Report Type: 
  Country: None (occurrence: None)
  Receive Date: 20040517
  Receipt Date: 20040517
  Transmission Date: 20050107
  Serious: Yes (Other)
  Sender: FDA-Public Use
  Company Number: None

PATIENT
  Sex: Female
  Weight: 64 kg

DRUGS (4)
  1. SIROLIMUS 1 MG WYETH [Suspect]
     Indication: IMMUNOSUPPRESSANT DRUG THERAPY
     Dosage: 6 MG QD PO
     Route: 048
     Dates: start: 20030620
  2. TACROLIMUS-1 MG FUJISAWA [Suspect]
     Indication: IMMUNOSUPPRESSANT DRUG THERAPY
     Dosage: 3 MG QD PO
     Route: 048
     Dates: start: 20030620
  3. ZENAPAX [Concomitant]
  4. BACTRIM [Concomitant]

REACTIONS (1)
  - NEUTROPENIA [None]
